FAERS Safety Report 16141338 (Version 1)
Quarter: 2019Q2

REPORT INFORMATION
  Report Type: Spontaneous
  Country: US (occurrence: US)
  Receive Date: 20190401
  Receipt Date: 20190401
  Transmission Date: 20190711
  Serious: No
  Sender: FDA-Public Use
  Company Number: US-PFIZER INC-2019130465

PATIENT
  Age: 68 Year

DRUGS (9)
  1. BIAXIN [Suspect]
     Active Substance: CLARITHROMYCIN
     Dosage: UNK
  2. DILAUDID [Suspect]
     Active Substance: HYDROMORPHONE HYDROCHLORIDE
     Dosage: UNK
  3. LEVAQUIN [Suspect]
     Active Substance: LEVOFLOXACIN
     Dosage: UNK
  4. BACTRIM [Suspect]
     Active Substance: SULFAMETHOXAZOLE\TRIMETHOPRIM
     Dosage: UNK
  5. CODEINE [Suspect]
     Active Substance: CODEINE
     Dosage: UNK
  6. KEFLEX [Suspect]
     Active Substance: CEPHALEXIN
     Dosage: UNK
  7. NITROGLYCERIN. [Suspect]
     Active Substance: NITROGLYCERIN
     Dosage: UNK
  8. MORPHINE SULFATE. [Suspect]
     Active Substance: MORPHINE SULFATE
     Dosage: UNK
  9. MULTAQ [Suspect]
     Active Substance: DRONEDARONE
     Dosage: UNK

REACTIONS (1)
  - Drug hypersensitivity [Unknown]
